FAERS Safety Report 9269066 (Version 3)
Quarter: 2013Q3

REPORT INFORMATION
  Report Type: Report from Study
  Country: ZA (occurrence: ZA)
  Receive Date: 20130503
  Receipt Date: 20130806
  Transmission Date: 20140515
  Serious: Yes (Hospitalization, Other)
  Sender: FDA-Public Use
  Company Number: ZA-ROCHE-1217411

PATIENT
  Age: 61 Year
  Sex: Female

DRUGS (5)
  1. PEGASYS [Suspect]
     Indication: HEPATITIS C
     Dosage: FOR 24 WEEKS
     Route: 065
     Dates: start: 20130221
  2. COPEGUS [Suspect]
     Indication: HEPATITIS C
     Dosage: FOR 24 WEEKS
     Route: 048
     Dates: start: 20130221
  3. NEUPOGEN [Concomitant]
     Dosage: 3 NEUPOGEN INJECTIONS
     Route: 065
     Dates: start: 20130718, end: 20130718
  4. NEUPOGEN [Concomitant]
     Dosage: 1 NEUPOGEN INJECTION
     Route: 065
     Dates: start: 20130722, end: 20130722
  5. NEUPOGEN [Concomitant]
     Dosage: 1 NEUPOGEN INJECTION
     Route: 065
     Dates: start: 20130725, end: 20130725

REACTIONS (11)
  - Malaise [Unknown]
  - Musculoskeletal disorder [Unknown]
  - Hypoaesthesia [Unknown]
  - Hypoaesthesia [Unknown]
  - Stomatitis [Not Recovered/Not Resolved]
  - Gingival pain [Not Recovered/Not Resolved]
  - Neutropenia [Unknown]
  - Red blood cell count decreased [Unknown]
  - Feeling abnormal [Unknown]
  - Rash pustular [Recovering/Resolving]
  - Pruritus [Unknown]
